FAERS Safety Report 21694253 (Version 3)
Quarter: 2022Q4

REPORT INFORMATION
  Report Type: Spontaneous
  Country: US (occurrence: US)
  Receive Date: 20221207
  Receipt Date: 20221219
  Transmission Date: 20230113
  Serious: No
  Sender: FDA-Public Use
  Company Number: US-BAYER-2022A161494

PATIENT
  Age: 62 Year
  Sex: Female

DRUGS (1)
  1. BETASERON [Suspect]
     Active Substance: INTERFERON BETA-1B

REACTIONS (4)
  - Gait disturbance [None]
  - Incorrect dose administered [None]
  - Device use error [None]
  - Accidental exposure to product [None]

NARRATIVE: CASE EVENT DATE: 20221118
